FAERS Safety Report 12559189 (Version 1)
Quarter: 2016Q3

REPORT INFORMATION
  Report Type: Spontaneous
  Country: US (occurrence: US)
  Receive Date: 20160715
  Receipt Date: 20160715
  Transmission Date: 20161109
  Serious: No
  Sender: FDA-Public Use
  Company Number: US-TEVA-663292USA

PATIENT
  Sex: Female

DRUGS (1)
  1. ZECUITY [Suspect]
     Active Substance: SUMATRIPTAN SUCCINATE
     Indication: MIGRAINE
     Dosage: AT ONSET OF MIGRAINE; APPLY PATCH TO UNDERARM OR THIGH
     Route: 062
     Dates: start: 201605

REACTIONS (5)
  - Application site irritation [Unknown]
  - Application site pruritus [Unknown]
  - Dermatitis contact [Unknown]
  - Application site erythema [Unknown]
  - Application site urticaria [Unknown]
